FAERS Safety Report 5540821-5 (Version None)
Quarter: 2007Q4

REPORT INFORMATION
  Report Type: 
  Country: None (occurrence: None)
  Receive Date: 20071129
  Receipt Date: 20070416
  Transmission Date: 20080405
  Serious: Yes (Other)
  Sender: FDA-Public Use
  Company Number: US200703003192

PATIENT
  Age: 35 Year
  Sex: Female
  Weight: 95.2 kg

DRUGS (11)
  1. ZYPREXA ZYDIS [Suspect]
     Indication: SCHIZOAFFECTIVE DISORDER
     Dosage: SEE IMAGE
     Dates: start: 20040101, end: 20040101
  2. ZYPREXA ZYDIS [Suspect]
     Indication: SCHIZOAFFECTIVE DISORDER
     Dosage: SEE IMAGE
     Dates: start: 20040101, end: 20040101
  3. ZYPREXA ZYDIS [Suspect]
     Indication: SCHIZOAFFECTIVE DISORDER
     Dosage: SEE IMAGE
     Dates: start: 20040101, end: 20050101
  4. ZYPREXA ZYDIS [Suspect]
     Indication: SCHIZOAFFECTIVE DISORDER
     Dosage: SEE IMAGE
     Dates: start: 20050101, end: 20061201
  5. ZYPREXA ZYDIS [Suspect]
     Indication: SCHIZOAFFECTIVE DISORDER
     Dosage: SEE IMAGE
     Dates: start: 20061201
  6. TEGRETOL [Concomitant]
  7. HALDOL DECANOATE (HALOPERIDOL DECANOATE) [Concomitant]
  8. TRAZODONE HCL [Concomitant]
  9. ABILIFY [Concomitant]
  10. COGENTIN [Concomitant]
  11. HALOPERIDOL [Concomitant]

REACTIONS (7)
  - BLOOD TRIGLYCERIDES INCREASED [None]
  - HYPERSOMNIA [None]
  - METABOLIC SYNDROME [None]
  - NAUSEA [None]
  - OBESITY [None]
  - TYPE 2 DIABETES MELLITUS [None]
  - WEIGHT INCREASED [None]
